FAERS Safety Report 6915606-5 (Version None)
Quarter: 2010Q3

REPORT INFORMATION
  Report Type: 
  Country: None (occurrence: None)
  Receive Date: 20100804
  Receipt Date: 20100724
  Transmission Date: 20110219
  Serious: Yes (Other)
  Sender: FDA-Public Use
  Company Number: 2010AP001526

PATIENT
  Age: 72 Year
  Sex: Male

DRUGS (2)
  1. ALENDRONATE SODIUM [Suspect]
     Indication: OSTEOPOROTIC FRACTURE
     Dosage: 70 MG;QW
  2. ACETAMINOPHEN [Concomitant]

REACTIONS (3)
  - EOSINOPHILIA [None]
  - IMPAIRED HEALING [None]
  - LICHENOID KERATOSIS [None]
